FAERS Safety Report 6962073-1 (Version None)
Quarter: 2010Q3

REPORT INFORMATION
  Report Type: 
  Country: None (occurrence: None)
  Receive Date: 20100901
  Receipt Date: 20100901
  Transmission Date: 20110219
  Serious: Yes (Life-Threatening, Hospitalization)
  Sender: FDA-Public Use
  Company Number: None

PATIENT
  Age: 46 Year
  Sex: Female
  Weight: 79.3795 kg

DRUGS (1)
  1. AMBIEN [Suspect]
     Indication: INSOMNIA
     Dosage: UNKNOWN DAILY PO
     Route: 048
     Dates: start: 20100721, end: 20100729

REACTIONS (4)
  - DEPRESSION [None]
  - INTENTIONAL OVERDOSE [None]
  - INTENTIONAL SELF-INJURY [None]
  - SUICIDE ATTEMPT [None]
